FAERS Safety Report 15560759 (Version 2)
Quarter: 2019Q1

REPORT INFORMATION
  Report Type: Spontaneous
  Country: US (occurrence: US)
  Receive Date: 20181029
  Receipt Date: 20190319
  Transmission Date: 20190417
  Serious: No
  Sender: FDA-Public Use
  Company Number: US-PFIZER INC-2018430809

PATIENT
  Age: 76 Year
  Sex: Male

DRUGS (2)
  1. TOLTERODINE TARTRATE. [Suspect]
     Active Substance: TOLTERODINE TARTRATE
     Dosage: UNK
  2. TOLTERODINE TARTRATE. [Suspect]
     Active Substance: TOLTERODINE TARTRATE
     Dosage: 4 MG, AS NEEDED (4MG AS NEEDED   )
     Route: 048

REACTIONS (3)
  - Condition aggravated [Not Recovered/Not Resolved]
  - Drug ineffective [Unknown]
  - Pollakiuria [Not Recovered/Not Resolved]
